FAERS Safety Report 21234864 (Version 1)
Quarter: 2022Q3

REPORT INFORMATION
  Report Type: Spontaneous
  Country: US (occurrence: US)
  Receive Date: 20220820
  Receipt Date: 20220820
  Transmission Date: 20221027
  Serious: Yes (Other)
  Sender: FDA-Public Use
  Company Number: US-COLGATE PALMOLIVE COMPANY-20220801463

PATIENT
  Age: 35 Year
  Sex: Male

DRUGS (1)
  1. COLGATE OPTIC WHITE RENEWAL HIGH IMPACT WHITE [Suspect]
     Active Substance: SODIUM MONOFLUOROPHOSPHATE
     Dosage: 1-2 TIMES
     Dates: start: 2022, end: 2022

REACTIONS (1)
  - Dental caries [Unknown]

NARRATIVE: CASE EVENT DATE: 20220101
